FAERS Safety Report 5506878-2 (Version None)
Quarter: 2007Q4

REPORT INFORMATION
  Report Type: 
  Country: None (occurrence: None)
  Receive Date: 20071105
  Receipt Date: 20071024
  Transmission Date: 20080405
  Serious: Yes (Other)
  Sender: FDA-Public Use
  Company Number: US-PFIZER INC-2007090320

PATIENT
  Age: 58 Year
  Sex: Female

DRUGS (4)
  1. CHANTIX [Suspect]
     Indication: SMOKING CESSATION THERAPY
     Dosage: TEXT:EVERYDAY
     Route: 048
     Dates: start: 20070901, end: 20071001
  2. ACCUPRIL [Concomitant]
     Indication: HYPERTENSION
     Route: 048
  3. PLAVIX [Concomitant]
     Route: 048
  4. ZOCOR [Concomitant]
     Route: 048

REACTIONS (5)
  - AGEUSIA [None]
  - AGITATION [None]
  - ANXIETY [None]
  - ARTHRALGIA [None]
  - HOMICIDAL IDEATION [None]
